FAERS Safety Report 10051000 (Version 2)
Quarter: 2014Q2

REPORT INFORMATION
  Report Type: Spontaneous
  Country: US (occurrence: None)
  Receive Date: 20140328
  Receipt Date: 20140421
  Transmission Date: 20141212
  Serious: Yes (Other)
  Sender: FDA-Public Use
  Company Number: AUR-APL-2014-03884

PATIENT
  Age: 22 Year
  Sex: Female

DRUGS (6)
  1. SEMISODIUM VALPROATE [Suspect]
     Indication: MIGRAINE PROPHYLAXIS
  2. LEVETIRACETAM [Suspect]
     Indication: MIGRAINE PROPHYLAXIS
  3. LAMOTRIGINE [Suspect]
     Indication: MIGRAINE PROPHYLAXIS
     Dosage: STOPPED
  4. TOPIRAMATE [Suspect]
     Indication: MIGRAINE PROPHYLAXIS
  5. ZONISAMIDE [Suspect]
     Indication: MIGRAINE PROPHYLAXIS
  6. COENZYME Q10 [Suspect]
     Indication: MIGRAINE PROPHYLAXIS

REACTIONS (2)
  - Rash [None]
  - Drug ineffective [None]
